FAERS Safety Report 8553026-0 (Version None)
Quarter: 2012Q3

REPORT INFORMATION
  Report Type: 
  Country: None (occurrence: None)
  Receive Date: 20120731
  Receipt Date: 20120726
  Transmission Date: 20120928
  Serious: Yes (Hospitalization, Other)
  Sender: FDA-Public Use
  Company Number: US-SANOFI-AVENTIS-2012SA053107

PATIENT
  Age: 65 Year
  Sex: Male

DRUGS (1)
  1. LOVENOX [Suspect]
     Dates: start: 20120416

REACTIONS (2)
  - THROMBOSIS [None]
  - CONVULSION [None]
